FAERS Safety Report 11235801 (Version 4)
Quarter: 2016Q4

REPORT INFORMATION
  Report Type: Spontaneous
  Country: DK (occurrence: DK)
  Receive Date: 20150702
  Receipt Date: 20161103
  Transmission Date: 20170206
  Serious: Yes (Hospitalization)
  Sender: FDA-Public Use
  Company Number: PHHY2015DK076185

PATIENT
  Sex: Female
  Weight: 89 kg

DRUGS (14)
  1. ATORVASTATIN [Suspect]
     Active Substance: ATORVASTATIN
     Indication: HYPERCHOLESTEROLAEMIA
     Dosage: 20 MG QD
     Route: 048
     Dates: start: 199904
  2. CENTYL MITE MED KALIUMKLORID [Concomitant]
     Indication: DIURETIC THERAPY
     Route: 065
     Dates: start: 1999, end: 20160315
  3. CENTYL MITE MED KALIUMKLORID [Concomitant]
     Dates: start: 1999, end: 20160315
  4. PANTOPRAZOLE [Concomitant]
     Active Substance: PANTOPRAZOLE SODIUM
     Dates: start: 2011
  5. AMLODIPIN [Concomitant]
     Active Substance: AMLODIPINE BESYLATE
     Indication: HYPERTENSION
     Route: 065
     Dates: start: 1999
  6. CLOPIDOGREL [Suspect]
     Active Substance: CLOPIDOGREL BISULFATE
     Indication: THROMBOSIS PROPHYLAXIS
     Dosage: 75 MG, QD
     Route: 048
     Dates: start: 199904
  7. ALNOK [Concomitant]
     Active Substance: CETIRIZINE HYDROCHLORIDE
     Indication: HYPERSENSITIVITY
     Route: 065
     Dates: start: 2011
  8. ATORVASTATIN [Suspect]
     Active Substance: ATORVASTATIN
     Dosage: STYRKE: 20 MG.
     Route: 048
     Dates: start: 199904
  9. CLOPIDOGREL [Suspect]
     Active Substance: CLOPIDOGREL BISULFATE
     Dosage: STYRKE: 75 MG.
     Route: 048
     Dates: start: 199904
  10. AMLODIPINE [Concomitant]
     Active Substance: AMLODIPINE BESYLATE
     Indication: HYPERTENSION
     Route: 065
     Dates: start: 1999
  11. ANGICOR [Concomitant]
     Indication: ANGINA PECTORIS
     Route: 065
     Dates: start: 2012
  12. IMDUR [Concomitant]
     Active Substance: ISOSORBIDE MONONITRATE
     Indication: ANGINA PECTORIS
     Route: 065
     Dates: start: 1999
  13. KALEORID [Concomitant]
     Active Substance: POTASSIUM CHLORIDE
     Indication: MINERAL SUPPLEMENTATION
     Route: 065
     Dates: start: 2004
  14. PANTOPRAZOLE [Concomitant]
     Active Substance: PANTOPRAZOLE SODIUM
     Indication: GASTROOESOPHAGEAL REFLUX DISEASE
     Route: 065
     Dates: start: 2011

REACTIONS (6)
  - Product substitution issue [Not Recovered/Not Resolved]
  - Haematuria [Recovered/Resolved]
  - Increased tendency to bruise [Not Recovered/Not Resolved]
  - Paraesthesia [Unknown]
  - Haematuria [Unknown]
  - Haemorrhagic diathesis [Not Recovered/Not Resolved]

NARRATIVE: CASE EVENT DATE: 2006
